FAERS Safety Report 21211492 (Version 1)
Quarter: 2022Q3

REPORT INFORMATION
  Report Type: Spontaneous
  Country: US (occurrence: None)
  Receive Date: 20220814
  Receipt Date: 20220814
  Transmission Date: 20221026
  Serious: Yes (Other)
  Sender: FDA-Public Use
  Company Number: None

PATIENT
  Age: 64 Year
  Sex: Female
  Weight: 58.5 kg

DRUGS (1)
  1. PAXLOVID [Suspect]
     Active Substance: NIRMATRELVIR\RITONAVIR
     Indication: COVID-19
     Dosage: FREQUENCY : TWICE A DAY;?
     Route: 048
     Dates: start: 20220813

REACTIONS (6)
  - Muscle spasms [None]
  - Sciatica [None]
  - Nausea [None]
  - Feeling of body temperature change [None]
  - Diarrhoea [None]
  - Faeces pale [None]

NARRATIVE: CASE EVENT DATE: 20220813
